FAERS Safety Report 7754477-4 (Version None)
Quarter: 2011Q3

REPORT INFORMATION
  Report Type: 
  Country: None (occurrence: None)
  Receive Date: 20110915
  Receipt Date: 20110914
  Transmission Date: 20111222
  Serious: Yes (Hospitalization)
  Sender: FDA-Public Use
  Company Number: US-B.I. PHARMACEUTICALS,INC./RIDGEFIELD-2010-RU-00006BP

PATIENT
  Sex: Female
  Weight: 70.5 kg

DRUGS (2)
  1. BI 1356 [Suspect]
     Indication: TYPE 2 DIABETES MELLITUS
     Dosage: 5 MG
     Route: 048
     Dates: start: 20100625, end: 20100902
  2. TRIAL PROCEDURE [Suspect]
     Indication: TYPE 2 DIABETES MELLITUS

REACTIONS (8)
  - NAUSEA [None]
  - PULMONARY CONGESTION [None]
  - URINARY TRACT INFECTION [None]
  - HYPOXIA [None]
  - PLEURAL FIBROSIS [None]
  - CARDIAC FAILURE CONGESTIVE [None]
  - HYPOTENSION [None]
  - PAIN [None]
